FAERS Safety Report 7246793-X (Version None)
Quarter: 2011Q1

REPORT INFORMATION
  Report Type: 
  Country: None (occurrence: None)
  Receive Date: 20110127
  Receipt Date: 20110118
  Transmission Date: 20110831
  Serious: Yes (Other)
  Sender: FDA-Public Use
  Company Number: DE-AMGEN-DEUSP2011004118

PATIENT
  Age: 71 Year
  Sex: Male

DRUGS (4)
  1. ENBREL [Suspect]
     Indication: RHEUMATOID ARTHRITIS
     Dosage: 25 MG, 2X/WEEK
     Dates: start: 20100827
  2. MTX [Concomitant]
     Dosage: UNK
  3. GLUCOCORTICOSTEROIDS [Concomitant]
  4. ENBREL [Suspect]
     Indication: POLYARTHRITIS

REACTIONS (1)
  - VISUAL ACUITY REDUCED [None]
